FAERS Safety Report 19965005 (Version 8)
Quarter: 2022Q3

REPORT INFORMATION
  Report Type: Report from Study
  Country: PL (occurrence: PL)
  Receive Date: 20211018
  Receipt Date: 20220920
  Transmission Date: 20221026
  Serious: Yes (Hospitalization)
  Sender: FDA-Public Use
  Company Number: PL-GLAXOSMITHKLINE-PL2021GSK196249

PATIENT

DRUGS (49)
  1. BELANTAMAB MAFODOTIN [Suspect]
     Active Substance: BELANTAMAB MAFODOTIN
     Indication: Plasma cell myeloma
     Dosage: 2.5 MG/KG ON DAY 1 OF EVERY 21 DAY CYCLE
     Route: 042
     Dates: start: 20210222, end: 20210922
  2. BELANTAMAB MAFODOTIN [Suspect]
     Active Substance: BELANTAMAB MAFODOTIN
     Dosage: 2.5 MG/KG ON DAY 1 OF EVERY 21 DAY CYCLE
     Route: 042
     Dates: start: 20210317, end: 20210317
  3. BELANTAMAB MAFODOTIN [Suspect]
     Active Substance: BELANTAMAB MAFODOTIN
     Dosage: 2.5 MG/KG ON DAY 1 OF EVERY 21 DAY CYCLE
     Route: 042
     Dates: start: 20210901, end: 20210901
  4. BELANTAMAB MAFODOTIN [Suspect]
     Active Substance: BELANTAMAB MAFODOTIN
     Dosage: 2.5 MG/KG ON DAY 1 OF EVERY 21 DAY CYCLE
     Route: 042
     Dates: start: 20211004, end: 20211004
  5. BELANTAMAB MAFODOTIN [Suspect]
     Active Substance: BELANTAMAB MAFODOTIN
     Dosage: 2.5 MG/KG ON DAY 1 OF EVERY 21 DAY CYCLE
     Route: 042
     Dates: start: 20220622, end: 20220622
  6. LEVOTHYROXINE SODIUM [Concomitant]
     Active Substance: LEVOTHYROXINE SODIUM
     Indication: Hypothyroidism
     Dosage: 75 UG, 2 TIMES PER WEEK
     Route: 048
     Dates: start: 2003
  7. LEVOTHYROXINE SODIUM [Concomitant]
     Active Substance: LEVOTHYROXINE SODIUM
     Dosage: 50 UG, 2 TIMES PER WEEK
     Route: 048
     Dates: start: 2003
  8. ACARD [Concomitant]
     Indication: Cardiovascular event prophylaxis
     Dosage: 75 MG, QD
     Route: 048
     Dates: start: 20210201
  9. ALLOPURINOL [Concomitant]
     Active Substance: ALLOPURINOL
     Indication: Hyperuricaemia
     Dosage: 300 MG, QD
     Route: 048
     Dates: start: 20210222
  10. HYALURONATE SODIUM [Concomitant]
     Active Substance: HYALURONATE SODIUM
     Indication: Eye disorder prophylaxis
     Dosage: 0.15 %, BID
     Route: 061
     Dates: start: 20210222
  11. DEXAMETHASONE [Concomitant]
     Active Substance: DEXAMETHASONE
     Indication: Prophylaxis
     Dosage: 20 MG, ONCE
     Route: 042
     Dates: start: 20210614, end: 20210614
  12. DEXAMETHASONE [Concomitant]
     Active Substance: DEXAMETHASONE
     Dosage: 20 MG, ONCE
     Route: 042
     Dates: start: 20210719, end: 20210719
  13. DEXAMETHASONE [Concomitant]
     Active Substance: DEXAMETHASONE
     Dosage: 20 MG, ONCE
     Route: 042
     Dates: start: 20210811, end: 20210811
  14. DEXAMETHASONE [Concomitant]
     Active Substance: DEXAMETHASONE
     Dosage: 20 MG, ONCE
     Route: 042
     Dates: start: 20210901, end: 20210901
  15. DEXAMETHASONE [Concomitant]
     Active Substance: DEXAMETHASONE
     Dosage: 20MG, ONCE
     Route: 042
     Dates: start: 20211004, end: 20211004
  16. DEXAMETHASONE [Concomitant]
     Active Substance: DEXAMETHASONE
     Dosage: 20 MG, ONCE
     Route: 042
     Dates: start: 20211103, end: 20211103
  17. DEXAMETHASONE [Concomitant]
     Active Substance: DEXAMETHASONE
     Dosage: 20 MG, ONCE
     Route: 042
     Dates: start: 20211122, end: 20211122
  18. DEXAMETHASONE [Concomitant]
     Active Substance: DEXAMETHASONE
     Dosage: 20 MG, ONCE
     Route: 042
     Dates: start: 20211213, end: 20211213
  19. DEXAMETHASONE [Concomitant]
     Active Substance: DEXAMETHASONE
     Dosage: 20 MG, ONCE
     Route: 042
     Dates: start: 20220216, end: 20220216
  20. DEXAMETHASONE [Concomitant]
     Active Substance: DEXAMETHASONE
     Dosage: 20 MG, ONCE
     Route: 042
     Dates: start: 20220309, end: 20220309
  21. DEXAMETHASONE [Concomitant]
     Active Substance: DEXAMETHASONE
     Dosage: 20 MG, ONCE
     Route: 042
     Dates: start: 20220330, end: 20220330
  22. DEXAMETHASONE [Concomitant]
     Active Substance: DEXAMETHASONE
     Dosage: 20 MG, ONCE
     Route: 042
     Dates: start: 20220420, end: 20220420
  23. DEXAMETHASONE [Concomitant]
     Active Substance: DEXAMETHASONE
     Dosage: 20 MG, ONCE
     Route: 042
     Dates: start: 20220511, end: 20220511
  24. ACETAMINOPHEN [Concomitant]
     Active Substance: ACETAMINOPHEN
     Indication: Prophylaxis
     Dosage: 1 G, ONCE
     Route: 042
     Dates: start: 20210614, end: 20210614
  25. ACETAMINOPHEN [Concomitant]
     Active Substance: ACETAMINOPHEN
     Dosage: 1 G, ONCE
     Route: 042
     Dates: start: 20210719, end: 20210719
  26. ACETAMINOPHEN [Concomitant]
     Active Substance: ACETAMINOPHEN
     Dosage: 1 G, ONCE
     Route: 042
     Dates: start: 20210811, end: 20210811
  27. ACETAMINOPHEN [Concomitant]
     Active Substance: ACETAMINOPHEN
     Dosage: 1 G, ONCE
     Route: 042
     Dates: start: 20210901, end: 20210901
  28. ACETAMINOPHEN [Concomitant]
     Active Substance: ACETAMINOPHEN
     Dosage: 1 G, ONCE
     Route: 042
     Dates: start: 20211004, end: 20211004
  29. ACETAMINOPHEN [Concomitant]
     Active Substance: ACETAMINOPHEN
     Dosage: 1 G, ONCE
     Route: 042
     Dates: start: 20211103, end: 20211103
  30. ACETAMINOPHEN [Concomitant]
     Active Substance: ACETAMINOPHEN
     Dosage: 1 G, ONCE
     Route: 042
     Dates: start: 20211122, end: 20211122
  31. ACETAMINOPHEN [Concomitant]
     Active Substance: ACETAMINOPHEN
     Dosage: 1 G, ONCE
     Route: 042
     Dates: start: 20211213, end: 20211213
  32. ACETAMINOPHEN [Concomitant]
     Active Substance: ACETAMINOPHEN
     Dosage: 1 G, ONCE
     Route: 042
     Dates: start: 20220216, end: 20220216
  33. ACETAMINOPHEN [Concomitant]
     Active Substance: ACETAMINOPHEN
     Dosage: 1 G, ONCE
     Route: 042
     Dates: start: 20220309, end: 20220309
  34. ACETAMINOPHEN [Concomitant]
     Active Substance: ACETAMINOPHEN
     Dosage: 1 G, ONCE
     Route: 042
     Dates: start: 20220330, end: 20220330
  35. ACETAMINOPHEN [Concomitant]
     Active Substance: ACETAMINOPHEN
     Dosage: 1 G, ONCE
     Route: 042
     Dates: start: 20220420, end: 20220420
  36. ACETAMINOPHEN [Concomitant]
     Active Substance: ACETAMINOPHEN
     Dosage: 1 G, ONCE
     Route: 042
     Dates: start: 20220511, end: 20220511
  37. CLEMASTINE [Concomitant]
     Active Substance: CLEMASTINE
     Indication: Prophylaxis
     Dosage: 2 MG, ONCE
     Route: 042
     Dates: start: 20210614, end: 20210614
  38. CLEMASTINE [Concomitant]
     Active Substance: CLEMASTINE
     Dosage: 2 MG, ONCE
     Dates: start: 20210719, end: 20210719
  39. CLEMASTINE [Concomitant]
     Active Substance: CLEMASTINE
     Dosage: 2 MG, ONCE
     Route: 042
     Dates: start: 20210811, end: 20210811
  40. CLEMASTINE [Concomitant]
     Active Substance: CLEMASTINE
     Dosage: 2 MG, ONCE
     Route: 042
     Dates: start: 20210901, end: 20210901
  41. CLEMASTINE [Concomitant]
     Active Substance: CLEMASTINE
     Dosage: 2 MG, QD
     Route: 048
     Dates: start: 20211004, end: 20211004
  42. CLEMASTINE [Concomitant]
     Active Substance: CLEMASTINE
     Dosage: 2 MG, ONCE
     Route: 042
     Dates: start: 20211103, end: 20211103
  43. CLEMASTINE [Concomitant]
     Active Substance: CLEMASTINE
     Dosage: 20 MG,ONCE
     Route: 042
     Dates: start: 20211122, end: 20211122
  44. CLEMASTINE [Concomitant]
     Active Substance: CLEMASTINE
     Dosage: 2 MG, ONCE
     Route: 042
     Dates: start: 20211206, end: 20211213
  45. CLEMASTINE [Concomitant]
     Active Substance: CLEMASTINE
     Dosage: 2 MG, ONCE
     Route: 042
     Dates: start: 20220216, end: 20220216
  46. CLEMASTINE [Concomitant]
     Active Substance: CLEMASTINE
     Dosage: 2 MG, ONCE
     Route: 042
     Dates: start: 20220309, end: 20220309
  47. CLEMASTINE [Concomitant]
     Active Substance: CLEMASTINE
     Dosage: 2 MG, ONCE
     Route: 042
     Dates: start: 20220330, end: 20220330
  48. CLEMASTINE [Concomitant]
     Active Substance: CLEMASTINE
     Dosage: 2 MG, ONCE
     Route: 042
     Dates: start: 20220420, end: 20220420
  49. CLEMASTINE [Concomitant]
     Active Substance: CLEMASTINE
     Dosage: 2 MG, ONCE
     Route: 042
     Dates: start: 20220511, end: 20220511

REACTIONS (1)
  - Pneumonitis [Recovered/Resolved]

NARRATIVE: CASE EVENT DATE: 20210910
